FAERS Safety Report 21792050 (Version 1)
Quarter: 2022Q4

REPORT INFORMATION
  Report Type: Report from Study
  Country: US (occurrence: US)
  Receive Date: 20221229
  Receipt Date: 20221229
  Transmission Date: 20230113
  Serious: No
  Sender: FDA-Public Use
  Company Number: US-ABBVIE-4206571

PATIENT
  Sex: Female

DRUGS (4)
  1. RINVOQ [Suspect]
     Active Substance: UPADACITINIB
     Indication: Product used for unknown indication
     Route: 048
  2. Moderna [Concomitant]
     Indication: COVID-19 immunisation
     Dosage: 1ST
     Route: 030
     Dates: start: 20210224, end: 20210224
  3. Moderna [Concomitant]
     Indication: COVID-19 immunisation
     Dosage: 2ND
     Route: 030
     Dates: start: 20210324, end: 20210324
  4. Moderna [Concomitant]
     Indication: COVID-19 immunisation
     Dosage: 3RD
     Route: 030
     Dates: start: 20211230, end: 20211230

REACTIONS (1)
  - Incontinence [Unknown]
